FAERS Safety Report 8326907-0 (Version None)
Quarter: 2012Q2

REPORT INFORMATION
  Report Type: 
  Country: None (occurrence: None)
  Receive Date: 20120501
  Receipt Date: 20120424
  Transmission Date: 20120825
  Serious: Yes (Other)
  Sender: FDA-Public Use
  Company Number: US-PFIZER INC-2012067150

PATIENT
  Sex: Female

DRUGS (2)
  1. LYRICA [Suspect]
     Dosage: 150 MG, 2X/DAY
     Route: 048
  2. LYRICA [Suspect]
     Indication: COMPLEX REGIONAL PAIN SYNDROME
     Dosage: 150 MG, 1X/DAY
     Route: 048

REACTIONS (5)
  - IMPAIRED DRIVING ABILITY [None]
  - URTICARIA [None]
  - SEDATION [None]
  - PAIN [None]
  - SOMNOLENCE [None]
